FAERS Safety Report 19503224 (Version 1)
Quarter: 2021Q3

REPORT INFORMATION
  Report Type: Spontaneous
  Country: GB (occurrence: GB)
  Receive Date: 20210707
  Receipt Date: 20210707
  Transmission Date: 20211014
  Serious: Yes (Other)
  Sender: FDA-Public Use
  Company Number: GB-ADVANZ PHARMA-202106004614

PATIENT

DRUGS (3)
  1. PREDNISOLONE. [Suspect]
     Active Substance: PREDNISOLONE
     Indication: ECZEMA
     Dosage: 3 TABLETS FOR 5 DAYS TAPERED DOWN EVERY 5 DAYS TO HALF A TABLET 20DAYS IN TOTAL (TABLET)
     Route: 048
  2. CETIRIZINE [Concomitant]
     Active Substance: CETIRIZINE HYDROCHLORIDE
     Indication: ILL-DEFINED DISORDER
     Dosage: UNK
  3. CLOBAVATE [Suspect]
     Active Substance: CLOBETASONE BUTYRATE
     Indication: ILL-DEFINED DISORDER
     Dosage: APPLY A THIN LAYER TWICE A DAY
     Route: 061
     Dates: start: 20210225, end: 20210228

REACTIONS (10)
  - Erythema [Not Recovered/Not Resolved]
  - Rash [Recovered/Resolved]
  - Medication error [Unknown]
  - Pruritus [Not Recovered/Not Resolved]
  - Scratch [Not Recovered/Not Resolved]
  - Swelling face [Not Recovered/Not Resolved]
  - Skin weeping [Recovering/Resolving]
  - Erythema [Recovering/Resolving]
  - Skin atrophy [Recovering/Resolving]
  - Urticaria [Recovered/Resolved with Sequelae]

NARRATIVE: CASE EVENT DATE: 20210225
